FAERS Safety Report 6860603-1 (Version None)
Quarter: 2010Q3

REPORT INFORMATION
  Report Type: 
  Country: None (occurrence: None)
  Receive Date: 20100720
  Receipt Date: 20100714
  Transmission Date: 20110219
  Serious: Yes (Life-Threatening)
  Sender: FDA-Public Use
  Company Number: ES-ROCHE-715472

PATIENT
  Sex: Male
  Weight: 88 kg

DRUGS (4)
  1. BEVACIZUMAB [Suspect]
     Indication: RECTAL CANCER
     Dosage: LAST DOSE PRIOR TO SAE: MAY 2010.
     Route: 042
     Dates: start: 20100412
  2. CAPECITABINE [Suspect]
     Indication: RECTAL CANCER
     Dosage: LAST DOSE PRIOR TO SAE: MAY 2010.
     Route: 048
     Dates: start: 20100412
  3. RISPERDAL [Concomitant]
     Dates: start: 20030101
  4. CIPRALEX [Concomitant]
     Dates: start: 20030101

REACTIONS (1)
  - SEPTIC SHOCK [None]
